FAERS Safety Report 4302543-8 (Version None)
Quarter: 2004Q1

REPORT INFORMATION
  Report Type: 
  Country: None (occurrence: None)
  Receive Date: 20040223
  Receipt Date: 20040223
  Transmission Date: 20041129
  Serious: Yes (Hospitalization)
  Sender: FDA-Public Use
  Company Number: None

PATIENT
  Age: 45 Year
  Sex: Female
  Weight: 118 kg

DRUGS (3)
  1. OXACILLIN [Suspect]
     Indication: CELLULITIS
     Dosage: 2GM Q 6 HOURS IV
     Route: 042
     Dates: start: 20031230, end: 20031231
  2. HEPARIN [Concomitant]
  3. SODIUM CHLORIDE [Concomitant]

REACTIONS (2)
  - HEART RATE INCREASED [None]
  - PYREXIA [None]
